FAERS Safety Report 9908335 (Version 1)
Quarter: 2014Q1

REPORT INFORMATION
  Report Type: Spontaneous
  Country: CH (occurrence: CH)
  Receive Date: 20140219
  Receipt Date: 20140219
  Transmission Date: 20141002
  Serious: Yes (Death)
  Sender: FDA-Public Use
  Company Number: CH-JNJFOC-20140205282

PATIENT
  Sex: Male

DRUGS (3)
  1. HALDOL [Suspect]
     Indication: DELIRIUM
     Dosage: 25-30MG PER DAY
     Route: 030
     Dates: start: 2007
  2. TEMESTA [Suspect]
     Indication: DELIRIUM
     Route: 065
  3. TRUXAL [Suspect]
     Indication: DELIRIUM
     Route: 065

REACTIONS (2)
  - Completed suicide [Fatal]
  - Restlessness [Unknown]
